FAERS Safety Report 10085718 (Version 1)
Quarter: 2014Q2

REPORT INFORMATION
  Report Type: Spontaneous
  Country: US (occurrence: None)
  Receive Date: 20140416
  Receipt Date: 20140416
  Transmission Date: 20141212
  Serious: Yes (Hospitalization)
  Sender: FDA-Public Use
  Company Number: FK201401308

PATIENT
  Age: 61 Year
  Sex: Male

DRUGS (4)
  1. CARBOPLATIN [Suspect]
     Indication: SMALL CELL LUNG CANCER METASTATIC
  2. ETOPOSIDE [Suspect]
     Indication: SMALL CELL LUNG CANCER METASTATIC
  3. ALLOPURINOL (ALLOPURINOL) [Concomitant]
  4. PEGFILGRASTIM (PEGFILGRASTIM) [Concomitant]

REACTIONS (7)
  - Malignant neoplasm progression [None]
  - Fall [None]
  - Dizziness [None]
  - Muscular weakness [None]
  - Extradural neoplasm [None]
  - Small cell lung cancer [None]
  - Hypoaesthesia [None]
